FAERS Safety Report 4915297-9 (Version None)
Quarter: 2006Q1

REPORT INFORMATION
  Report Type: 
  Country: None (occurrence: None)
  Receive Date: 20060217
  Receipt Date: 20060214
  Transmission Date: 20060701
  Serious: Yes (Hospitalization)
  Sender: FDA-Public Use
  Company Number: 2006009897

PATIENT
  Age: 31 Year
  Sex: Female
  Weight: 49.1 kg

DRUGS (14)
  1. FOSAMPRENAVIR [Suspect]
     Indication: HIV TEST POSITIVE
     Dosage: 700MG TWICE PER DAY
     Route: 048
     Dates: start: 20051220
  2. BLINDED TRIAL MEDICATION [Suspect]
     Indication: HIV TEST POSITIVE
     Route: 048
     Dates: start: 20051220
  3. SAQUINAVIR [Suspect]
     Indication: HIV TEST POSITIVE
     Dosage: 1000MG TWICE PER DAY
     Route: 048
     Dates: start: 20030723, end: 20060112
  4. RITONAVIR [Suspect]
     Indication: HIV TEST POSITIVE
     Dosage: 100MG TWICE PER DAY
     Route: 048
     Dates: start: 20030723
  5. FLUCONAZOLE [Concomitant]
     Route: 048
     Dates: start: 19971219
  6. BACTRIM [Concomitant]
     Route: 048
     Dates: start: 19971219
  7. ITRACONAZOLE [Concomitant]
     Route: 048
     Dates: start: 19971219
  8. AMITRIPTYLINE HCL [Concomitant]
     Route: 048
     Dates: start: 20041015
  9. ALEVE [Concomitant]
     Route: 048
     Dates: start: 20030824
  10. PROMETHAZINE [Concomitant]
     Route: 048
     Dates: start: 20051220
  11. POTASSIUM CHLORIDE [Concomitant]
     Route: 048
     Dates: start: 20060112
  12. LOPERAMIDE [Concomitant]
     Route: 048
     Dates: start: 20040213
  13. CITALOPRAM [Concomitant]
     Route: 048
     Dates: start: 20000705
  14. AZITHROMYCIN [Concomitant]
     Route: 048
     Dates: start: 20030811

REACTIONS (7)
  - CONFUSIONAL STATE [None]
  - ENCEPHALOPATHY [None]
  - HEADACHE [None]
  - HYPOAESTHESIA [None]
  - PARAESTHESIA [None]
  - SPEECH DISORDER [None]
  - TRANSIENT ISCHAEMIC ATTACK [None]
